FAERS Safety Report 4800578-X (Version None)
Quarter: 2005Q3

REPORT INFORMATION
  Report Type: 
  Country: None (occurrence: None)
  Receive Date: 20050929
  Receipt Date: 20050815
  Transmission Date: 20060218
  Serious: No
  Sender: FDA-Public Use
  Company Number: 05P-163-0308319-00

PATIENT
  Age: 53 Year
  Sex: Female
  Weight: 136 kg

DRUGS (11)
  1. HUMIRA [Suspect]
     Indication: RHEUMATOID ARTHRITIS
     Dosage: 40 MG, 1 IN 2 WK, SUBCUTANEOUS
     Route: 058
     Dates: start: 20040201, end: 20050301
  2. LEFLUNOMIDE [Concomitant]
  3. FENOFIBRATE [Concomitant]
  4. PAROXETINE HYDROCHLORIDE [Concomitant]
  5. PROPRANOLOL [Concomitant]
  6. CLONOPINE [Concomitant]
  7. LEVOTHYROXINE SODIUM [Concomitant]
  8. RISPERIDONE [Concomitant]
  9. FLUVASTATIN SODIUM [Concomitant]
  10. PREDNISONE TAB [Concomitant]
  11. COUMADIN [Concomitant]

REACTIONS (2)
  - PROTEIN URINE PRESENT [None]
  - SKIN NODULE [None]
